FAERS Safety Report 10041027 (Version 2)
Quarter: 2014Q2

REPORT INFORMATION
  Report Type: Spontaneous
  Country: US (occurrence: US)
  Receive Date: 20140327
  Receipt Date: 20140422
  Transmission Date: 20141212
  Serious: Yes (Other)
  Sender: FDA-Public Use
  Company Number: US-BAYER-2014-043964

PATIENT
  Sex: Female

DRUGS (1)
  1. MIRENA [Suspect]
     Indication: CONTRACEPTION
     Dosage: 20 MCG/24HR, CONT
     Route: 015
     Dates: start: 20121010

REACTIONS (9)
  - Genital haemorrhage [None]
  - Migraine [None]
  - Weight increased [None]
  - Hormone level abnormal [None]
  - Bipolar disorder [None]
  - Vaginal discharge [None]
  - Vaginal discharge [None]
  - Abdominal pain [None]
  - Menstruation irregular [None]
